FAERS Safety Report 13976631 (Version 5)
Quarter: 2018Q2

REPORT INFORMATION
  Report Type: Report from Study
  Country: BR (occurrence: BR)
  Receive Date: 20170915
  Receipt Date: 20180501
  Transmission Date: 20180711
  Serious: Yes (Other)
  Sender: FDA-Public Use
  Company Number: PHHY2017BR116847

PATIENT
  Age: 42 Year
  Sex: Female
  Weight: 72 kg

DRUGS (4)
  1. COSENTYX [Suspect]
     Active Substance: SECUKINUMAB
     Dosage: 300 MG, UNK
     Route: 058
     Dates: start: 20171224
  2. COSENTYX [Suspect]
     Active Substance: SECUKINUMAB
     Indication: PSORIATIC ARTHROPATHY
     Dosage: 300 MG, QMO (EVERY 4 WEEKS), 2 AMPOU;ES ONCE A MONTH
     Route: 058
     Dates: start: 20170112, end: 20170629
  3. COSENTYX [Suspect]
     Active Substance: SECUKINUMAB
     Indication: ANKYLOSING SPONDYLITIS
     Dosage: 300 MG, UNK
     Route: 058
     Dates: start: 20170803, end: 20171026
  4. VIMOVO [Concomitant]
     Active Substance: ESOMEPRAZOLE MAGNESIUM\NAPROXEN
     Indication: PSORIATIC ARTHROPATHY
     Dosage: 2 DF (800MG), QD
     Route: 048

REACTIONS (16)
  - Tooth infection [Recovering/Resolving]
  - Stress [Unknown]
  - Swelling face [Recovering/Resolving]
  - Urinary tract infection [Recovering/Resolving]
  - Pain [Recovering/Resolving]
  - Pelvic pain [Recovering/Resolving]
  - Pharyngitis [Unknown]
  - Therapeutic response decreased [Unknown]
  - Malaise [Unknown]
  - Dysuria [Recovering/Resolving]
  - Pyrexia [Recovering/Resolving]
  - Oropharyngeal pain [Recovering/Resolving]
  - Weight increased [Unknown]
  - Tonsillitis [Recovering/Resolving]
  - Decreased immune responsiveness [Unknown]
  - Psoriasis [Unknown]

NARRATIVE: CASE EVENT DATE: 201709
